FAERS Safety Report 4474321-0 (Version None)
Quarter: 2004Q4

REPORT INFORMATION
  Report Type: 
  Country: None (occurrence: None)
  Receive Date: 20041012
  Receipt Date: 20041004
  Transmission Date: 20050328
  Serious: Yes (Death, Hospitalization, Other)
  Sender: FDA-Public Use
  Company Number: 2004-08-1540

PATIENT
  Age: 68 Year
  Sex: Male

DRUGS (2)
  1. CELESTONE [Suspect]
     Indication: DERMATOMYOSITIS
     Dosage: ORAL
     Route: 048
  2. PREDNISOLONE SODIUM SUCCINATE INJ [Suspect]
     Indication: DERMATOMYOSITIS
     Dosage: 50 MG QD INTRAVENOUS
     Route: 042

REACTIONS (16)
  - BLOOD BETA-D-GLUCAN INCREASED [None]
  - BRONCHOPNEUMONIA [None]
  - C-REACTIVE PROTEIN INCREASED [None]
  - CANDIDIASIS [None]
  - DERMATOMYOSITIS [None]
  - DIFFUSE ALVEOLAR DAMAGE [None]
  - DISEASE RECURRENCE [None]
  - HEPATIC STEATOSIS [None]
  - INTERSTITIAL LUNG DISEASE [None]
  - PNEUMONIA ASPIRATION [None]
  - PULMONARY FIBROSIS [None]
  - PYREXIA [None]
  - RESPIRATORY FAILURE [None]
  - SERRATIA INFECTION [None]
  - SPUTUM CULTURE POSITIVE [None]
  - STAPHYLOCOCCAL INFECTION [None]
